FAERS Safety Report 5590945-1 (Version None)
Quarter: 2008Q1

REPORT INFORMATION
  Report Type: 
  Country: None (occurrence: None)
  Receive Date: 20080115
  Receipt Date: 20080102
  Transmission Date: 20080703
  Serious: Yes (Other)
  Sender: FDA-Public Use
  Company Number: DE-BAYER-200111617BVD

PATIENT
  Age: 61 Year
  Sex: Female

DRUGS (4)
  1. BAYCOL [Suspect]
     Indication: HYPERCHOLESTEROLAEMIA
     Route: 048
     Dates: start: 20001221, end: 20010801
  2. EXELON [Concomitant]
  3. TREVILON RET. [Concomitant]
  4. GYNODIAN DEP. [Concomitant]

REACTIONS (4)
  - HEPATIC FIBROSIS [None]
  - LABORATORY TEST ABNORMAL [None]
  - MUSCULAR WEAKNESS [None]
  - RASH [None]
